FAERS Safety Report 18848719 (Version 1)
Quarter: 2021Q1

REPORT INFORMATION
  Report Type: Spontaneous
  Country: FR (occurrence: FR)
  Receive Date: 20210204
  Receipt Date: 20210204
  Transmission Date: 20210419
  Serious: Yes (Hospitalization)
  Sender: FDA-Public Use
  Company Number: FR-MYLANLABS-2021M1006945

PATIENT
  Age: 48 Year
  Sex: Male
  Weight: 65 kg

DRUGS (5)
  1. ACTISKENAN [Concomitant]
     Active Substance: MORPHINE SULFATE
     Dosage: 20 MILLIGRAM
  2. BENDAMUSTINE HYDROCHLORIDE. [Suspect]
     Active Substance: BENDAMUSTINE HYDROCHLORIDE
     Indication: HODGKIN^S DISEASE
     Dosage: 175 MILLIGRAM
     Route: 042
     Dates: start: 20201002, end: 20201002
  3. ONDANSETRON [Suspect]
     Active Substance: ONDANSETRON
     Indication: CHEMOTHERAPY SIDE EFFECT PROPHYLAXIS
     Dosage: 8 MILLIGRAM
     Route: 042
     Dates: start: 20201002, end: 20201002
  4. FASTURTEC [Suspect]
     Active Substance: RASBURICASE
     Indication: CHEMOTHERAPY SIDE EFFECT PROPHYLAXIS
     Dosage: 7.5 MILLIGRAM
     Route: 042
     Dates: start: 20201002, end: 20201002
  5. SKENAN [Concomitant]
     Active Substance: MORPHINE SULFATE
     Dosage: 40 MILLIGRAM

REACTIONS (1)
  - Methaemoglobinaemia [Recovered/Resolved]

NARRATIVE: CASE EVENT DATE: 20201002
